FAERS Safety Report 23315755 (Version 1)
Quarter: 2023Q4

REPORT INFORMATION
  Report Type: Spontaneous
  Country: GB (occurrence: GB)
  Receive Date: 20231219
  Receipt Date: 20231219
  Transmission Date: 20240110
  Serious: Yes (Death, Other)
  Sender: FDA-Public Use
  Company Number: None

PATIENT
  Age: 51 Year
  Sex: Male

DRUGS (1)
  1. PEMBROLIZUMAB [Suspect]
     Active Substance: PEMBROLIZUMAB
     Indication: Renal cell carcinoma stage III
     Dosage: 200MG ONCE EVERY THREE WEEKS
     Dates: start: 20230217

REACTIONS (6)
  - Death [Fatal]
  - Disseminated aspergillosis [Fatal]
  - Myasthenia gravis [Fatal]
  - Myocarditis [Fatal]
  - Eyelid ptosis [Fatal]
  - Dyspnoea [Fatal]

NARRATIVE: CASE EVENT DATE: 20230101
